FAERS Safety Report 9291849 (Version 1)
Quarter: 2013Q2

REPORT INFORMATION
  Report Type: Spontaneous
  Country: US (occurrence: US)
  Receive Date: 20130516
  Receipt Date: 20130516
  Transmission Date: 20140414
  Serious: No
  Sender: FDA-Public Use
  Company Number: US-009507513-1305USA004520

PATIENT
  Sex: Female

DRUGS (2)
  1. PRINZIDE [Suspect]
     Indication: HYPERTENSION
     Dosage: 10 MG, BID
     Route: 048
     Dates: start: 201105
  2. BENADRYL [Concomitant]

REACTIONS (2)
  - Throat tightness [Unknown]
  - Swollen tongue [Unknown]
